FAERS Safety Report 11096498 (Version 2)
Quarter: 2015Q2

REPORT INFORMATION
  Report Type: Report from Study
  Country: ZA (occurrence: ZA)
  Receive Date: 20150507
  Receipt Date: 20150605
  Transmission Date: 20150821
  Serious: Yes (Death, Hospitalization, Other)
  Sender: FDA-Public Use
  Company Number: ZA-AMGEN-ZAFSL2015043586

PATIENT
  Age: 60 Year
  Sex: Male

DRUGS (1)
  1. ARANESP [Suspect]
     Active Substance: DARBEPOETIN ALFA
     Indication: PRODUCT USED FOR UNKNOWN INDICATION
     Dosage: 40 MUG, Q2WK
     Route: 058

REACTIONS (4)
  - Death [Fatal]
  - Metastases to lung [Unknown]
  - Dialysis [Unknown]
  - Metastases to bone [Unknown]

NARRATIVE: CASE EVENT DATE: 20150501
